FAERS Safety Report 15650212 (Version 2)
Quarter: 2018Q4

REPORT INFORMATION
  Report Type: Spontaneous
  Country: JP (occurrence: JP)
  Receive Date: 20181123
  Receipt Date: 20181226
  Transmission Date: 20190205
  Serious: Yes (Other)
  Sender: FDA-Public Use
  Company Number: JP-ROCHE-2219232

PATIENT
  Age: 67 Year
  Sex: Male

DRUGS (20)
  1. LUCENTIS [Suspect]
     Active Substance: RANIBIZUMAB
     Route: 031
  2. LUCENTIS [Suspect]
     Active Substance: RANIBIZUMAB
     Route: 031
  3. LUCENTIS [Suspect]
     Active Substance: RANIBIZUMAB
     Route: 031
  4. LUCENTIS [Suspect]
     Active Substance: RANIBIZUMAB
     Route: 031
  5. LUCENTIS [Suspect]
     Active Substance: RANIBIZUMAB
     Route: 031
  6. LUCENTIS [Suspect]
     Active Substance: RANIBIZUMAB
     Route: 031
  7. LUCENTIS [Suspect]
     Active Substance: RANIBIZUMAB
     Route: 031
  8. LUCENTIS [Suspect]
     Active Substance: RANIBIZUMAB
     Route: 031
  9. LUCENTIS [Suspect]
     Active Substance: RANIBIZUMAB
     Route: 031
     Dates: start: 20150203, end: 20150203
  10. EYLEA [Concomitant]
     Active Substance: AFLIBERCEPT
  11. LUCENTIS [Suspect]
     Active Substance: RANIBIZUMAB
     Indication: POLYPOIDAL CHOROIDAL VASCULOPATHY
     Route: 031
     Dates: start: 20130805
  12. LUCENTIS [Suspect]
     Active Substance: RANIBIZUMAB
     Route: 031
  13. LUCENTIS [Suspect]
     Active Substance: RANIBIZUMAB
     Route: 031
  14. LUCENTIS [Suspect]
     Active Substance: RANIBIZUMAB
     Route: 031
  15. LUCENTIS [Suspect]
     Active Substance: RANIBIZUMAB
     Route: 031
  16. LUCENTIS [Suspect]
     Active Substance: RANIBIZUMAB
     Route: 031
  17. LUCENTIS [Suspect]
     Active Substance: RANIBIZUMAB
     Route: 031
  18. LUCENTIS [Suspect]
     Active Substance: RANIBIZUMAB
     Route: 031
  19. LUCENTIS [Suspect]
     Active Substance: RANIBIZUMAB
     Indication: AGE-RELATED MACULAR DEGENERATION
     Route: 031
  20. LUCENTIS [Suspect]
     Active Substance: RANIBIZUMAB
     Route: 031

REACTIONS (2)
  - Visual acuity reduced [Recovering/Resolving]
  - Tachyphylaxis [Recovered/Resolved]

NARRATIVE: CASE EVENT DATE: 20150310
